FAERS Safety Report 5529012-1 (Version None)
Quarter: 2007Q4

REPORT INFORMATION
  Report Type: 
  Country: None (occurrence: None)
  Receive Date: 20071129
  Receipt Date: 20071122
  Transmission Date: 20080405
  Serious: Yes (Other)
  Sender: FDA-Public Use
  Company Number: PHFR2007GB02719

PATIENT
  Age: 20 Year
  Sex: Male
  Weight: 78 kg

DRUGS (2)
  1. CLOZARIL [Suspect]
     Indication: SCHIZOPHRENIA
     Route: 048
     Dates: start: 20061127
  2. OMEPRAZOLE [Concomitant]
     Indication: STOMACH DISCOMFORT
     Dosage: 20MG/DAY
     Route: 065

REACTIONS (1)
  - URINARY TRACT INFECTION [None]
